FAERS Safety Report 25418220 (Version 1)
Quarter: 2025Q2

REPORT INFORMATION
  Report Type: Spontaneous
  Country: US (occurrence: None)
  Receive Date: 20250606
  Receipt Date: 20250606
  Transmission Date: 20250717
  Serious: Yes (Hospitalization)
  Sender: FDA-CTU
  Company Number: None

PATIENT
  Age: 84 Year
  Sex: Male

DRUGS (1)
  1. DURVALUMAB [Suspect]
     Active Substance: DURVALUMAB
     Indication: Lung neoplasm malignant

REACTIONS (3)
  - Dyspnoea exertional [None]
  - Oxygen saturation decreased [None]
  - Pneumonitis [None]

NARRATIVE: CASE EVENT DATE: 20250523
